FAERS Safety Report 7238771-1 (Version None)
Quarter: 2011Q1

REPORT INFORMATION
  Report Type: 
  Country: None (occurrence: None)
  Receive Date: 20110121
  Receipt Date: 20110117
  Transmission Date: 20110831
  Serious: Yes (Other)
  Sender: FDA-Public Use
  Company Number: BR-PFIZER INC-2010136454

PATIENT
  Age: 41 Year
  Sex: Female
  Weight: 60 kg

DRUGS (10)
  1. PAMELOR [Concomitant]
     Indication: PANIC DISORDER
  2. PAMELOR [Concomitant]
     Indication: GENERALISED ANXIETY DISORDER
  3. SERTRALINE [Concomitant]
     Indication: ANTIDEPRESSANT THERAPY
     Dosage: 50 MG, 1X/DAY
     Dates: start: 20000101
  4. ALPRAZOLAM [Concomitant]
     Indication: RELAXATION THERAPY
     Dosage: 2 MG, 1X/DAY
     Dates: start: 20000101
  5. ALPRAZOLAM [Concomitant]
     Indication: GENERALISED ANXIETY DISORDER
  6. ALPRAZOLAM [Concomitant]
     Indication: SLEEP DISORDER
  7. PAMELOR [Concomitant]
     Indication: ANTIDEPRESSANT THERAPY
     Dosage: 50 MG, 1X/DAY
     Dates: start: 20000101
  8. SERTRALINE [Concomitant]
     Indication: GENERALISED ANXIETY DISORDER
  9. CHAMPIX [Suspect]
     Dosage: 1 MG, 2X/DAY
     Route: 048
  10. CHAMPIX [Suspect]
     Indication: TOBACCO USER
     Dosage: 0.5 MG, 1X/DAY
     Route: 048
     Dates: start: 20101019

REACTIONS (1)
  - HYPERTENSION [None]
